FAERS Safety Report 9764244 (Version 2)
Quarter: 2014Q1

REPORT INFORMATION
  Report Type: Report from Study
  Country: NL (occurrence: NL)
  Receive Date: 20131216
  Receipt Date: 20140103
  Transmission Date: 20141002
  Serious: Yes (Death)
  Sender: FDA-Public Use
  Company Number: PHHY2013NL146422

PATIENT
  Age: 69 Year
  Sex: Female

DRUGS (10)
  1. ACLASTA [Suspect]
     Indication: OSTEOPOROSIS
     Dosage: 5 MG, ONCE EVERY 52 WEEKS
     Route: 042
     Dates: start: 20111222
  2. ACLASTA [Suspect]
     Indication: SPINAL COMPRESSION FRACTURE
     Dosage: 5 MG, ONCE EVERY 52 WEEKS
     Route: 042
     Dates: start: 20121220
  3. THYRAX [Concomitant]
     Dosage: UNK UKN, UNK
  4. DIGOXIN [Concomitant]
     Dosage: UNK UKN, UNK
  5. ASA [Concomitant]
     Dosage: UNK UKN, UNK
  6. FLIXOTIDE [Concomitant]
     Dosage: UNK UKN, UNK
  7. SPIRONOLACTON [Concomitant]
     Dosage: 25 MG, UNK
  8. FUROSEMIDE [Concomitant]
     Dosage: 40 UKN, BID
  9. ACENOCOUMAROL [Concomitant]
     Dosage: UNK UKN, UNK
  10. METOPROLOL [Concomitant]
     Dosage: UNK UKN, UNK

REACTIONS (6)
  - Cardiac disorder [Fatal]
  - Gastrointestinal disorder [Fatal]
  - Intestinal ischaemia [Fatal]
  - Peritonitis [Fatal]
  - Abdominal abscess [Fatal]
  - Device related sepsis [Fatal]
